FAERS Safety Report 23777481 (Version 3)
Quarter: 2025Q4

REPORT INFORMATION
  Report Type: Spontaneous
  Country: AU (occurrence: AU)
  Receive Date: 20240424
  Receipt Date: 20251126
  Transmission Date: 20260118
  Serious: Yes (Hospitalization, Other)
  Sender: ASTELLAS
  Company Number: AU-ASTELLAS-2024US011828

PATIENT
  Age: 68 Year
  Sex: Female

DRUGS (9)
  1. TACROLIMUS [Interacting]
     Active Substance: TACROLIMUS
     Indication: Lung transplant
     Dosage: CONTROLLED-RELEASE
     Route: 048
     Dates: start: 2017, end: 202308
  2. TACROLIMUS [Interacting]
     Active Substance: TACROLIMUS
     Dosage: ON DAY 3 REINTRODUCED
     Route: 048
     Dates: start: 202308
  3. PAXLOVID [Interacting]
     Active Substance: NIRMATRELVIR\RITONAVIR
     Indication: COVID-19
     Dosage: NIRMATRELVIR 300 MG AND RITONAVIR 100 MG
     Route: 048
     Dates: start: 2023
  4. PHENYTOIN [Interacting]
     Active Substance: PHENYTOIN
     Indication: Drug level above therapeutic
     Dosage: 975, LOADING DOSE
     Route: 042
     Dates: start: 202308, end: 202308
  5. PHENYTOIN [Interacting]
     Active Substance: PHENYTOIN
     Dosage: 100, ON DAY 2 AND 3
     Route: 048
     Dates: start: 202308, end: 202308
  6. PHENYTOIN [Interacting]
     Active Substance: PHENYTOIN
     Dosage: 100, ON DAY 4
     Route: 048
     Dates: start: 202308, end: 202308
  7. MYCOPHENOLATE MOFETIL [Concomitant]
     Active Substance: MYCOPHENOLATE MOFETIL
     Indication: Lung transplant
     Route: 048
     Dates: start: 2017
  8. PREDNISOLONE [Concomitant]
     Active Substance: PREDNISOLONE
     Indication: Lung transplant
     Dosage: PLAN TO WEAN BACK TO 5 MG DAILY OVER 10 DAYS
     Route: 048
     Dates: start: 202308
  9. PREDNISOLONE [Concomitant]
     Active Substance: PREDNISOLONE
     Route: 048
     Dates: start: 2017, end: 202308

REACTIONS (5)
  - Toxicity to various agents [Recovered/Resolved]
  - Acute kidney injury [Recovered/Resolved]
  - COVID-19 [Unknown]
  - Drug interaction [Unknown]
  - Drug interaction [Unknown]

NARRATIVE: CASE EVENT DATE: 20230101
